FAERS Safety Report 4515037-1 (Version None)
Quarter: 2004Q4

REPORT INFORMATION
  Report Type: 
  Country: None (occurrence: None)
  Receive Date: 20041129
  Receipt Date: 20041129
  Transmission Date: 20050328
  Serious: Yes (Hospitalization)
  Sender: FDA-Public Use
  Company Number: None

PATIENT
  Sex: Male
  Weight: 85.9 kg

DRUGS (10)
  1. CELECOXIB 200MG CAPSULES (PFIZER) [Suspect]
     Indication: OESOPHAGEAL CARCINOMA
     Dosage: 400 MG PO BID
     Route: 048
     Dates: start: 20031109, end: 20041113
  2. TAXOL [Concomitant]
  3. CARBOPLATIN [Concomitant]
  4. CARDIZEM [Concomitant]
  5. AMANTADINE HCL [Concomitant]
  6. MIRAPEX [Concomitant]
  7. SELIGILINE [Concomitant]
  8. PROSCAR [Concomitant]
  9. PROTONIX [Concomitant]
  10. CIPROFLOXACIN [Concomitant]

REACTIONS (8)
  - ALEXIA [None]
  - AMNESIA [None]
  - ATRIAL FIBRILLATION [None]
  - CEREBRAL INFARCTION [None]
  - COMPUTERISED TOMOGRAM ABNORMAL [None]
  - HEADACHE [None]
  - NUCLEAR MAGNETIC RESONANCE IMAGING BRAIN ABNORMAL [None]
  - POST PROCEDURAL COMPLICATION [None]
